FAERS Safety Report 6122449-1 (Version None)
Quarter: 2009Q1

REPORT INFORMATION
  Report Type: 
  Country: None (occurrence: None)
  Receive Date: 20090318
  Receipt Date: 20081215
  Transmission Date: 20090719
  Serious: No
  Sender: FDA-Public Use
  Company Number: US-ASTRAZENECA-2008UW28049

PATIENT
  Age: 82 Year
  Sex: Female

DRUGS (2)
  1. SYMBICORT [Suspect]
     Indication: ASTHMA
     Dosage: AS NEEDED
     Route: 055
  2. SYMBICORT [Suspect]
     Dosage: DAILY
     Route: 055

REACTIONS (1)
  - DYSPNOEA [None]
